FAERS Safety Report 19036984 (Version 1)
Quarter: 2021Q1

REPORT INFORMATION
  Report Type: Spontaneous
  Country: US (occurrence: US)
  Receive Date: 20210322
  Receipt Date: 20210322
  Transmission Date: 20210420
  Serious: Yes (Other)
  Sender: FDA-Public Use
  Company Number: None

PATIENT
  Age: 44 Year
  Sex: Female
  Weight: 55.8 kg

DRUGS (3)
  1. WIXELA INHUB [Suspect]
     Active Substance: FLUTICASONE PROPIONATE\SALMETEROL XINAFOATE
     Indication: INFLAMMATION
     Dosage: ?          OTHER STRENGTH:INHALE 1 PUFF 2X;QUANTITY:1 PUFF(S);?
     Route: 055
     Dates: start: 20210319, end: 20210321
  2. WIXELA INHUB [Suspect]
     Active Substance: FLUTICASONE PROPIONATE\SALMETEROL XINAFOATE
     Indication: PNEUMONIA
     Dosage: ?          OTHER STRENGTH:INHALE 1 PUFF 2X;QUANTITY:1 PUFF(S);?
     Route: 055
     Dates: start: 20210319, end: 20210321
  3. REGULAR INHALER FOR MILD ASTHMA [Concomitant]

REACTIONS (8)
  - Dyspnoea [None]
  - Fear [None]
  - Drug ineffective [None]
  - Panic attack [None]
  - Feeling abnormal [None]
  - Swelling face [None]
  - Asthenia [None]
  - Malaise [None]

NARRATIVE: CASE EVENT DATE: 20210322
